FAERS Safety Report 4280733-0 (Version None)
Quarter: 2004Q1

REPORT INFORMATION
  Report Type: 
  Country: None (occurrence: None)
  Receive Date: 20040129
  Receipt Date: 20031113
  Transmission Date: 20041129
  Serious: No
  Sender: FDA-Public Use
  Company Number: US-BRISTOL-MYERS SQUIBB COMPANY-12434742

PATIENT
  Age: 54 Year
  Sex: Female
  Weight: 95 kg

DRUGS (6)
  1. METAGLIP [Suspect]
     Indication: DIABETES MELLITUS NON-INSULIN-DEPENDENT
     Dosage: DOSAGE FORM = TABLET (5/500MG)
     Route: 048
     Dates: end: 20031107
  2. ACTOS [Concomitant]
  3. TENORETIC 100 [Concomitant]
  4. PROTONIX [Concomitant]
  5. ZETIA [Concomitant]
  6. ZOLOFT [Concomitant]

REACTIONS (1)
  - DIARRHOEA [None]
